FAERS Safety Report 5254979-9 (Version None)
Quarter: 2007Q1

REPORT INFORMATION
  Report Type: 
  Country: None (occurrence: None)
  Receive Date: 20070305
  Receipt Date: 20070222
  Transmission Date: 20070707
  Serious: Yes (Hospitalization)
  Sender: FDA-Public Use
  Company Number: US-BRISTOL-MYERS SQUIBB COMPANY-13685540

PATIENT
  Age: 59 Year
  Sex: Female

DRUGS (5)
  1. ATAZANAVIR SULFATE [Suspect]
  2. AZITHROMYCIN [Suspect]
  3. AMIODARONE HCL [Suspect]
  4. LAMIVUDINE [Concomitant]
  5. ZIDOVUDINE [Concomitant]

REACTIONS (3)
  - ELECTROCARDIOGRAM QT CORRECTED INTERVAL PROLONGED [None]
  - TORSADE DE POINTES [None]
  - VENTRICULAR TACHYCARDIA [None]
